FAERS Safety Report 5502706-X (Version None)
Quarter: 2007Q4

REPORT INFORMATION
  Report Type: 
  Country: None (occurrence: None)
  Receive Date: 20071031
  Receipt Date: 20071024
  Transmission Date: 20080405
  Serious: Yes (Hospitalization)
  Sender: FDA-Public Use
  Company Number: FR-NOVOPROD-268799

PATIENT
  Age: 17 Year
  Sex: Female

DRUGS (1)
  1. NORDITROPIN [Suspect]
     Indication: TURNER'S SYNDROME
     Dates: start: 20020101, end: 20071001

REACTIONS (1)
  - RHEUMATOID ARTHRITIS [None]
